FAERS Safety Report 6669454-4 (Version None)
Quarter: 2010Q2

REPORT INFORMATION
  Report Type: 
  Country: None (occurrence: None)
  Receive Date: 20100406
  Receipt Date: 20100325
  Transmission Date: 20101027
  Serious: Yes (Hospitalization, Other)
  Sender: FDA-Public Use
  Company Number: PHHY2010FR18843

PATIENT
  Sex: Male

DRUGS (6)
  1. TAREG [Suspect]
     Indication: ATRIAL FIBRILLATION
     Dosage: 160 MG, QD
     Route: 048
     Dates: start: 20090922, end: 20091001
  2. THERALENE [Suspect]
     Indication: AGITATION
     Dosage: 10 DROPS ORAL SOLUTION
     Route: 048
     Dates: start: 20090922, end: 20091001
  3. LASIX [Suspect]
     Indication: ATRIAL FIBRILLATION
     Dosage: 40 MG, QD
     Dates: start: 20090922, end: 20091002
  4. OGASTRO [Suspect]
     Dosage: ONCE DAILY
     Route: 048
     Dates: start: 20090922, end: 20091001
  5. IMOVANE [Suspect]
     Indication: INSOMNIA
     Dosage: 7.5 MG, QD
     Route: 048
     Dates: start: 20090922
  6. COUMADIN [Suspect]
     Indication: ATRIAL FIBRILLATION
     Dosage: 3 MG DAILY
     Route: 048
     Dates: start: 20090922

REACTIONS (8)
  - ANAEMIA [None]
  - CONDITION AGGRAVATED [None]
  - INFLAMMATION [None]
  - LEUKOPENIA [None]
  - LYMPHOPENIA [None]
  - NEUTROPENIA [None]
  - RENAL FAILURE [None]
  - THROMBOCYTOPENIA [None]
